FAERS Safety Report 7733279-9 (Version None)
Quarter: 2011Q3

REPORT INFORMATION
  Report Type: 
  Country: None (occurrence: None)
  Receive Date: 20110907
  Receipt Date: 20101109
  Transmission Date: 20111222
  Serious: No
  Sender: FDA-Public Use
  Company Number: US-BAYER-201041334NA

PATIENT
  Sex: Female

DRUGS (1)
  1. MIRENA [Suspect]
     Dosage: 20 MCG/24HR, CONT
     Route: 015
     Dates: start: 20100716, end: 20101021

REACTIONS (15)
  - ACNE [None]
  - DEPRESSION [None]
  - NIPPLE SWELLING [None]
  - GENITAL HAEMORRHAGE [None]
  - RASH [None]
  - ADVERSE DRUG REACTION [None]
  - BACK PAIN [None]
  - URTICARIA [None]
  - MUSCULOSKELETAL STIFFNESS [None]
  - HOT FLUSH [None]
  - SKIN ODOUR ABNORMAL [None]
  - LOSS OF LIBIDO [None]
  - BREAST DISCOMFORT [None]
  - ABDOMINAL PAIN LOWER [None]
  - NAUSEA [None]
